FAERS Safety Report 23049733 (Version 1)
Quarter: 2023Q4

REPORT INFORMATION
  Report Type: Spontaneous
  Country: US (occurrence: None)
  Receive Date: 20231009
  Receipt Date: 20231009
  Transmission Date: 20240109
  Serious: Yes (Hospitalization)
  Sender: FDA-Public Use
  Company Number: None

PATIENT
  Sex: Female

DRUGS (26)
  1. AUBAGIO [Suspect]
     Active Substance: TERIFLUNOMIDE
     Indication: Multiple sclerosis
     Route: 048
     Dates: start: 20190829
  2. AMITRIPTYLINE [Concomitant]
     Active Substance: AMITRIPTYLINE
  3. ASPIRIN [Concomitant]
     Active Substance: ASPIRIN
  4. ATORVASTATIN [Concomitant]
     Active Substance: ATORVASTATIN
  5. B12 COMPLNCE KIT INJ KIT [Concomitant]
  6. BUPROPION [Concomitant]
  7. CLONAZEPAM [Concomitant]
     Active Substance: CLONAZEPAM
  8. ENALAPRIL [Concomitant]
     Active Substance: ENALAPRIL
  9. FAMOTIDINE [Concomitant]
     Active Substance: FAMOTIDINE
  10. FUROSEMIDE [Concomitant]
     Active Substance: FUROSEMIDE
  11. IBUPROFEN [Concomitant]
     Active Substance: IBUPROFEN
  12. LEVOTHYROXINE [Concomitant]
     Active Substance: LEVOTHYROXINE
  13. LYRICA [Concomitant]
     Active Substance: PREGABALIN
  14. MELOXICAM [Concomitant]
     Active Substance: MELOXICAM
  15. METOPROLOL TARTRATE [Concomitant]
     Active Substance: METOPROLOL TARTRATE
  16. MIDODRINE [Concomitant]
     Active Substance: MIDODRINE
  17. OMEPRAZOLE [Concomitant]
     Active Substance: OMEPRAZOLE
  18. PAROXETINE [Concomitant]
     Active Substance: PAROXETINE
  19. PREDNISONE [Concomitant]
     Active Substance: PREDNISONE
  20. PREGABALIN [Concomitant]
     Active Substance: PREGABALIN
  21. QUETIAPINE [Concomitant]
     Active Substance: QUETIAPINE
  22. SERTRALINE [Concomitant]
     Active Substance: SERTRALINE HYDROCHLORIDE
  23. SIMVASTATIN [Concomitant]
     Active Substance: SIMVASTATIN
  24. TOPIRAMATE [Concomitant]
     Active Substance: TOPIRAMATE
  25. TRAMADOL HCL [Concomitant]
     Active Substance: TRAMADOL HYDROCHLORIDE
  26. VITAMIN D [Concomitant]
     Active Substance: VITAMIN D NOS

REACTIONS (2)
  - Hospitalisation [None]
  - Intentional dose omission [None]
